APPROVED DRUG PRODUCT: DEFERASIROX
Active Ingredient: DEFERASIROX
Strength: 360MG
Dosage Form/Route: GRANULE;ORAL
Application: A214559 | Product #003 | TE Code: AB
Applicant: AUCTA PHARMACEUTICALS INC
Approved: Mar 9, 2021 | RLD: No | RS: No | Type: RX